FAERS Safety Report 22093069 (Version 5)
Quarter: 2023Q2

REPORT INFORMATION
  Report Type: Report from Study
  Country: US (occurrence: US)
  Receive Date: 20230314
  Receipt Date: 20230526
  Transmission Date: 20230722
  Serious: No
  Sender: FDA-Public Use
  Company Number: US-002147023-NVSC2023US058784

PATIENT
  Sex: Female

DRUGS (3)
  1. ENTRESTO [Suspect]
     Active Substance: SACUBITRIL\VALSARTAN
     Indication: Product used for unknown indication
     Dosage: 1 DOSAGE FORM, BID (2 TABS)
     Route: 048
     Dates: start: 202302
  2. LASIX [Suspect]
     Active Substance: FUROSEMIDE
     Indication: Weight increased
     Dosage: UNK
     Route: 065
  3. LASIX [Suspect]
     Active Substance: FUROSEMIDE
     Dosage: UNK, PRN
     Route: 065

REACTIONS (12)
  - Dehydration [Recovering/Resolving]
  - Peripheral swelling [Unknown]
  - Sinusitis [Unknown]
  - Throat clearing [Unknown]
  - Rhinorrhoea [Unknown]
  - Cystitis [Unknown]
  - Salt craving [Unknown]
  - Fatigue [Unknown]
  - Arthralgia [Unknown]
  - Fall [Unknown]
  - Tooth disorder [Unknown]
  - Chest pain [Unknown]
